FAERS Safety Report 9168700 (Version 1)
Quarter: 2013Q1

REPORT INFORMATION
  Report Type: Report from Study
  Country: AU (occurrence: AU)
  Receive Date: 20130318
  Receipt Date: 20130318
  Transmission Date: 20140127
  Serious: Yes (Hospitalization)
  Sender: FDA-Public Use
  Company Number: AU-JNJFOC-20130304496

PATIENT
  Sex: Female

DRUGS (5)
  1. STELARA [Suspect]
     Indication: PSORIASIS
     Route: 058
     Dates: start: 20121127
  2. STELARA [Suspect]
     Indication: PSORIASIS
     Route: 058
     Dates: start: 20121225
  3. COVERSYL [Concomitant]
  4. LERCANIDIPINE [Concomitant]
  5. PANADEINE FORTE [Concomitant]
     Indication: ARTHRITIS

REACTIONS (1)
  - Deep vein thrombosis [Recovering/Resolving]
